FAERS Safety Report 22045143 (Version 1)
Quarter: 2023Q1

REPORT INFORMATION
  Report Type: Spontaneous
  Country: CZ (occurrence: CZ)
  Receive Date: 20230228
  Receipt Date: 20230228
  Transmission Date: 20230418
  Serious: Yes (Life-Threatening, Other)
  Sender: FDA-Public Use
  Company Number: None

PATIENT

DRUGS (13)
  1. ONCASPAR [Suspect]
     Active Substance: PEGASPARGASE
     Indication: Acute lymphocytic leukaemia
     Dosage: SINGLE DOSE ADMINISTRATION OF 3216 IU (DOSAGE: 2000 IU/M*2) IN 100ML OF SALINE SOLUTION FOR 2 HOURS
     Route: 042
     Dates: start: 20230212, end: 20230212
  2. AMBISOME [Concomitant]
     Active Substance: AMPHOTERICIN B
     Indication: Mucormycosis
     Dosage: ADMINISTERED AT 8 P.M. ALONG WITH PROPHYLACTIC PREMEDICATION
     Route: 042
     Dates: start: 20230210, end: 20230212
  3. CRESEMBA [Concomitant]
     Active Substance: ISAVUCONAZONIUM SULFATE
     Indication: Mucormycosis
     Dosage: 2 TABLETS AT 8 A.M.
     Route: 048
     Dates: start: 20230210, end: 20230212
  4. VALACYCLOVIR [Concomitant]
     Active Substance: VALACYCLOVIR HYDROCHLORIDE
     Indication: Antiviral prophylaxis
     Dosage: 500 MG EVERY 12 HOURS, ADMINISTERED AT 8 A.M. AND 8 P.M.
     Route: 048
     Dates: start: 20230210, end: 20230212
  5. CIPROFLOXACIN [Concomitant]
     Active Substance: CIPROFLOXACIN
     Indication: Antibiotic prophylaxis
     Dosage: ADMINISTERED AT 8 A.M. AND 8 P.M.
     Route: 048
     Dates: start: 20230210, end: 20230212
  6. ALLOPURINOL [Concomitant]
     Active Substance: ALLOPURINOL
     Indication: Chemotherapy side effect prophylaxis
     Dosage: 1X A DAY AT 12 P.M.
     Route: 048
     Dates: start: 20230211, end: 20230212
  7. ARDEAELYTOSOL CONC. NATRIUMCHLORID [Concomitant]
     Indication: Urine alkalinisation therapy
     Dosage: A TOTAL OF 320 ML WERE ADMINISTERED
     Route: 042
     Dates: start: 20230211, end: 20230212
  8. METHOTREXATE (METHOTREXATE SODIUM) [Concomitant]
     Active Substance: METHOTREXATE SODIUM
     Indication: Chemotherapy
     Dosage: 2410 MG IN 1000 ML OF SALINE SOLUTION CONTINUALLY FOR 24 HOURS
     Route: 042
     Dates: start: 20230211, end: 20230212
  9. GRANISETRON [Concomitant]
     Active Substance: GRANISETRON
     Indication: Prophylaxis of nausea and vomiting
     Dosage: 3 MG EVERY 12 HOURS
     Route: 042
     Dates: start: 20230211, end: 20230212
  10. FAMOTIDINE [Concomitant]
     Active Substance: FAMOTIDINE
     Indication: Prophylaxis
     Dosage: 1 TABLET A DAY AT 7 A.M.
     Route: 048
  11. CITALOPRAM [Concomitant]
     Active Substance: CITALOPRAM HYDROBROMIDE
     Indication: Depression
     Dosage: CHRONIC THERAPY
     Route: 048
  12. PURINETHOL [Concomitant]
     Active Substance: MERCAPTOPURINE
     Indication: Chemotherapy
     Dosage: 50 MG EVERY 12 HOURS
     Route: 048
  13. URSODIOL [Concomitant]
     Active Substance: URSODIOL
     Indication: Hepatobiliary disorder prophylaxis
     Dosage: CHRONIC MEDICATION
     Route: 048
     Dates: end: 20230212

REACTIONS (10)
  - Vomiting [Recovered/Resolved]
  - Anaphylactic reaction [Recovered/Resolved]
  - Oedema mucosal [Recovered/Resolved]
  - Chills [Recovered/Resolved]
  - Tachycardia [Recovered/Resolved]
  - Swelling face [Recovered/Resolved]
  - Hypotension [Recovered/Resolved]
  - Nausea [Recovered/Resolved]
  - Rash [Recovered/Resolved]
  - Chills [Recovered/Resolved]

NARRATIVE: CASE EVENT DATE: 20230212
